FAERS Safety Report 20489701 (Version 1)
Quarter: 2022Q1

REPORT INFORMATION
  Report Type: Report from Study
  Country: US (occurrence: US)
  Receive Date: 20220218
  Receipt Date: 20220218
  Transmission Date: 20220424
  Serious: Yes (Hospitalization, Other)
  Sender: FDA-Public Use
  Company Number: US-BAYER-2022A003639

PATIENT
  Age: 58 Year
  Sex: Male
  Weight: 108.84 kg

DRUGS (3)
  1. ADEMPAS [Suspect]
     Active Substance: RIOCIGUAT
     Indication: Pulmonary arterial hypertension
     Dosage: 0.5 MG, TID
     Route: 048
     Dates: start: 20211223
  2. ADEMPAS [Suspect]
     Active Substance: RIOCIGUAT
     Indication: Pulmonary arterial hypertension
     Dosage: 1 MG, TID
     Route: 048
  3. AMLODIPINE [Concomitant]
     Active Substance: AMLODIPINE BESYLATE
     Dosage: UNK

REACTIONS (9)
  - Loss of consciousness [Recovered/Resolved]
  - Memory impairment [None]
  - Respiratory tract congestion [None]
  - Dizziness [Recovered/Resolved]
  - Flatulence [None]
  - Dyspepsia [None]
  - Dizziness postural [None]
  - Weight decreased [None]
  - Dyspnoea [Recovered/Resolved]
